FAERS Safety Report 17465389 (Version 1)
Quarter: 2020Q3

REPORT INFORMATION
  Report Type: Report from Study
  Country: JP (occurrence: JP)
  Receive Date: 20200226
  Receipt Date: 20200226
  Transmission Date: 20201104
  Serious: Yes (Hospitalization)
  Sender: FDA-Public Use
  Company Number: JP-TEVA-2020-JP-1192940

PATIENT
  Age: 74 Year
  Sex: Male

DRUGS (26)
  1. POLATUZUMAB VEDOTIN. [Suspect]
     Active Substance: POLATUZUMAB VEDOTIN
     Dosage: 107 MG, CYCLIC (ONCE IN 3 WEEKS)
     Route: 042
     Dates: start: 20190822, end: 20190822
  2. MAGMITT [Concomitant]
     Active Substance: MAGNESIUM OXIDE
     Indication: CONSTIPATION
  3. BENDAMUSTINE HYDROCHLORIDE. [Suspect]
     Active Substance: BENDAMUSTINE HYDROCHLORIDE
     Dosage: 159 MG, CYCLIC (ONCE IN 3 WEEKS)
     Route: 042
     Dates: start: 20190330, end: 20190330
  4. BENDAMUSTINE HYDROCHLORIDE. [Suspect]
     Active Substance: BENDAMUSTINE HYDROCHLORIDE
     Dosage: 159 MG, CYCLIC (ONCE IN 3 WEEKS)
     Route: 042
     Dates: start: 20190418, end: 20190418
  5. BENDAMUSTINE HYDROCHLORIDE. [Suspect]
     Active Substance: BENDAMUSTINE HYDROCHLORIDE
     Dosage: 151 MG, CYCLIC (ONCE IN 3 WEEKS)
     Route: 042
     Dates: start: 20190822, end: 20190822
  6. POLATUZUMAB VEDOTIN. [Suspect]
     Active Substance: POLATUZUMAB VEDOTIN
     Dosage: 121 MG, CYCLIC (ONCE IN 3 WEEKS)
     Route: 042
     Dates: start: 20190606, end: 20190606
  7. FEBURIC [Concomitant]
     Active Substance: FEBUXOSTAT
     Indication: HYPERURICAEMIA
     Route: 048
  8. MOSAPRIDE CITRATE [Concomitant]
     Active Substance: MOSAPRIDE CITRATE
     Indication: PROPHYLAXIS OF NAUSEA AND VOMITING
     Route: 065
  9. BENDAMUSTINE HYDROCHLORIDE. [Suspect]
     Active Substance: BENDAMUSTINE HYDROCHLORIDE
     Dosage: 151 MG, CYCLIC (ONCE IN 3 WEEKS)
     Route: 042
     Dates: start: 20190720, end: 20190720
  10. RITUXIMAB. [Suspect]
     Active Substance: RITUXIMAB
     Indication: DIFFUSE LARGE B-CELL LYMPHOMA REFRACTORY
     Dosage: 660 MG, CYCLIC (ONCE IN 3 WEEKS)
     Route: 041
     Dates: start: 20190328, end: 20190328
  11. RITUXIMAB. [Suspect]
     Active Substance: RITUXIMAB
     Dosage: 660 MG, CYCLIC (ONCE IN 3 WEEKS)
     Route: 041
     Dates: start: 20190418, end: 20190418
  12. RITUXIMAB. [Suspect]
     Active Substance: RITUXIMAB
     Dosage: 620 MG, CYCLIC (ONCE IN 3 WEEKS)
     Route: 041
     Dates: start: 20190822, end: 20190822
  13. POLATUZUMAB VEDOTIN. [Suspect]
     Active Substance: POLATUZUMAB VEDOTIN
     Dosage: 121 MG, CYCLIC (ONCE IN 3 WEEKS)
     Route: 042
     Dates: start: 20190719, end: 20190719
  14. LANSOPRAZOLE. [Concomitant]
     Active Substance: LANSOPRAZOLE
     Indication: BLADDER DISORDER
     Route: 048
  15. BENDAMUSTINE HYDROCHLORIDE. [Suspect]
     Active Substance: BENDAMUSTINE HYDROCHLORIDE
     Indication: DIFFUSE LARGE B-CELL LYMPHOMA REFRACTORY
     Dosage: 30 MG/M2, CYCLIC (159 MG,ONCE IN 3 WEEKS)
     Route: 042
     Dates: start: 20190329, end: 20190329
  16. BENDAMUSTINE HYDROCHLORIDE. [Suspect]
     Active Substance: BENDAMUSTINE HYDROCHLORIDE
     Dosage: 159 MG, CYCLIC (ONCE IN 3 WEEKS)
     Route: 042
     Dates: start: 20190419, end: 20190419
  17. BENDAMUSTINE HYDROCHLORIDE. [Suspect]
     Active Substance: BENDAMUSTINE HYDROCHLORIDE
     Dosage: 159 MG, CYCLIC (ONCE IN 3 WEEKS)
     Route: 042
     Dates: start: 20190606, end: 20190606
  18. BENDAMUSTINE HYDROCHLORIDE. [Suspect]
     Active Substance: BENDAMUSTINE HYDROCHLORIDE
     Dosage: 159 MG, CYCLIC (ONCE IN 3 WEEKS)
     Route: 042
     Dates: start: 20190607, end: 20190607
  19. RITUXIMAB. [Suspect]
     Active Substance: RITUXIMAB
     Dosage: 660 MG, CYCLIC (ONCE IN 3 WEEKS)
     Route: 041
     Dates: start: 20190606, end: 20190606
  20. POLATUZUMAB VEDOTIN. [Suspect]
     Active Substance: POLATUZUMAB VEDOTIN
     Dosage: 121 MG, CYCLIC (ONCE IN 3 WEEKS)
     Route: 042
     Dates: start: 20190418, end: 20190418
  21. VESICARE [Concomitant]
     Active Substance: SOLIFENACIN SUCCINATE
     Indication: BLADDER DISORDER
     Route: 048
  22. MAGMITT [Concomitant]
     Active Substance: MAGNESIUM OXIDE
     Indication: BLADDER DISORDER
     Route: 048
  23. BENDAMUSTINE HYDROCHLORIDE. [Suspect]
     Active Substance: BENDAMUSTINE HYDROCHLORIDE
     Dosage: 151 MG, CYCLIC (ONCE IN 3 WEEKS)
     Route: 042
     Dates: start: 20190719, end: 20190719
  24. BENDAMUSTINE HYDROCHLORIDE. [Suspect]
     Active Substance: BENDAMUSTINE HYDROCHLORIDE
     Dosage: 151 MG, CYCLIC (ONCE IN 3 WEEKS)
     Route: 042
     Dates: start: 20190823, end: 20190823
  25. RITUXIMAB. [Suspect]
     Active Substance: RITUXIMAB
     Dosage: 620 MG, CYCLIC (ONCE IN 3 WEEKS)
     Route: 041
     Dates: start: 20190719, end: 20190719
  26. POLATUZUMAB VEDOTIN. [Suspect]
     Active Substance: POLATUZUMAB VEDOTIN
     Indication: DIFFUSE LARGE B-CELL LYMPHOMA REFRACTORY
     Dosage: 121 MG, CYCLIC (1.8 MG/KG, ONCE IN 3 WEEKS)
     Route: 042
     Dates: start: 20190329, end: 20190329

REACTIONS (1)
  - Appendicitis [Recovered/Resolved]

NARRATIVE: CASE EVENT DATE: 20190620
